FAERS Safety Report 9992358 (Version 2)
Quarter: 2014Q2

REPORT INFORMATION
  Report Type: Spontaneous
  Country: US (occurrence: US)
  Receive Date: 20140310
  Receipt Date: 20140408
  Transmission Date: 20141212
  Serious: Yes (Death, Hospitalization)
  Sender: FDA-Public Use
  Company Number: US-GLAXOSMITHKLINE-A1063337A

PATIENT
  Age: 47 Year
  Sex: Female

DRUGS (2)
  1. VENTOLIN [Suspect]
     Indication: PRODUCT USED FOR UNKNOWN INDICATION
     Dosage: 2PUFF UNKNOWN
     Route: 055
     Dates: start: 20140110
  2. MEGACE [Concomitant]

REACTIONS (1)
  - Malignant neoplasm progression [Fatal]
